APPROVED DRUG PRODUCT: NORISODRINE
Active Ingredient: ISOPROTERENOL SULFATE
Strength: 25%
Dosage Form/Route: POWDER;INHALATION
Application: N006905 | Product #002
Applicant: ABBVIE INC
Approved: Approved Prior to Jan 1, 1982 | RLD: No | RS: No | Type: DISCN